FAERS Safety Report 17600161 (Version 3)
Quarter: 2021Q1

REPORT INFORMATION
  Report Type: Spontaneous
  Country: US (occurrence: US)
  Receive Date: 20200330
  Receipt Date: 20210112
  Transmission Date: 20210419
  Serious: No
  Sender: FDA-Public Use
  Company Number: US-PFIZER INC-2020126021

PATIENT
  Age: 65 Year
  Sex: Female

DRUGS (1)
  1. PREMPRO [Suspect]
     Active Substance: ESTROGENS, CONJUGATED\MEDROXYPROGESTERONE ACETATE
     Indication: MENOPAUSAL SYMPTOMS
     Dosage: 1 TABLET, 1X/DAY
     Route: 048

REACTIONS (2)
  - Nasopharyngitis [Unknown]
  - Hypoacusis [Unknown]
